FAERS Safety Report 25834520 (Version 1)
Quarter: 2025Q3

REPORT INFORMATION
  Report Type: Report from Study
  Country: US (occurrence: US)
  Receive Date: 20250923
  Receipt Date: 20250923
  Transmission Date: 20251021
  Serious: Yes (Other)
  Sender: ALEXION PHARMACEUTICALS
  Company Number: US-AstraZeneca-CH-00953944A

PATIENT
  Sex: Male

DRUGS (3)
  1. OLAPARIB [Suspect]
     Active Substance: OLAPARIB
     Route: 065
  2. NUBEQA [Suspect]
     Active Substance: DAROLUTAMIDE
     Route: 065
  3. ORGOVYX [Suspect]
     Active Substance: RELUGOLIX
     Route: 065

REACTIONS (3)
  - Renal disorder [Unknown]
  - Kidney infection [Unknown]
  - Abdominal discomfort [Recovering/Resolving]
